FAERS Safety Report 7421734-0 (Version None)
Quarter: 2011Q2

REPORT INFORMATION
  Report Type: 
  Country: None (occurrence: None)
  Receive Date: 20110418
  Receipt Date: 20100319
  Transmission Date: 20111010
  Serious: Yes (Other)
  Sender: FDA-Public Use
  Company Number: US-BAYER-201016718NA

PATIENT
  Sex: Male
  Weight: 79.819 kg

DRUGS (18)
  1. PROCARDIA [Concomitant]
     Dosage: UNK
     Route: 048
     Dates: start: 20040202
  2. PLAVIX [Concomitant]
     Dosage: UNK
     Route: 048
     Dates: start: 20040202
  3. NITROGLYCERIN [Concomitant]
     Dosage: UNK
     Route: 048
     Dates: start: 20040202
  4. HYDRALAZINE [Concomitant]
     Dosage: UNK
     Route: 048
     Dates: start: 20040202
  5. TORADOL [Concomitant]
     Dosage: UNK
     Route: 048
     Dates: start: 20040202
  6. ACETAMINOPHEN [Concomitant]
     Dosage: UNK
     Route: 048
     Dates: start: 20040202
  7. ASPIRIN [Concomitant]
     Dosage: UNK
     Route: 048
     Dates: start: 20040202
  8. TRASYLOL [Suspect]
     Indication: CORONARY ARTERY BYPASS
     Dosage: UNK
     Dates: start: 20040204
  9. TOPROL-XL [Concomitant]
     Dosage: UNK
     Route: 048
     Dates: start: 20040202
  10. ACETYLSALICYLIC ACID SRT [Concomitant]
     Dosage: UNK
     Route: 048
     Dates: start: 20040202
  11. ANCEF [Concomitant]
     Dosage: UNK
     Route: 048
     Dates: start: 20040202
  12. RANITIDINE [Concomitant]
     Dosage: UNK
     Route: 048
     Dates: start: 20040202
  13. NORVASC [Concomitant]
     Dosage: UNK
     Route: 048
     Dates: start: 20040202
  14. CONTRAST MEDIA [Concomitant]
     Indication: ANGIOGRAM
     Dosage: UNK
     Dates: start: 20040120
  15. LIPITOR [Concomitant]
     Dosage: UNK
     Route: 048
     Dates: start: 20040202
  16. LESCOL [Concomitant]
     Dosage: UNK
     Route: 048
     Dates: start: 20040202
  17. PROTONIX [Concomitant]
     Dosage: UNK
     Route: 048
     Dates: start: 20040202
  18. LASIX [Concomitant]
     Dosage: UNK
     Route: 048
     Dates: start: 20040202

REACTIONS (7)
  - RENAL FAILURE [None]
  - ANXIETY [None]
  - UNEVALUABLE EVENT [None]
  - PAIN [None]
  - FEAR [None]
  - STRESS [None]
  - EMOTIONAL DISTRESS [None]
